FAERS Safety Report 5278278-4 (Version None)
Quarter: 2007Q1

REPORT INFORMATION
  Report Type: 
  Country: None (occurrence: None)
  Receive Date: 20070328
  Receipt Date: 20070320
  Transmission Date: 20070707
  Serious: Yes (Congenital Anomaly, Other)
  Sender: FDA-Public Use
  Company Number: FRWYE124521MAR07

PATIENT

DRUGS (1)
  1. EFFEXOR [Suspect]
     Dosage: UNKNOWN
     Route: 064
     Dates: start: 20050101, end: 20061001

REACTIONS (5)
  - CEREBRAL VENTRICLE DILATATION [None]
  - DRUG EXPOSURE DURING PREGNANCY [None]
  - PYELECTASIA [None]
  - TRISOMY 21 [None]
  - ULTRASOUND ANTENATAL SCREEN ABNORMAL [None]
